FAERS Safety Report 17693905 (Version 2)
Quarter: 2020Q2

REPORT INFORMATION
  Report Type: Spontaneous
  Country: HR (occurrence: HR)
  Receive Date: 20200422
  Receipt Date: 20200511
  Transmission Date: 20200714
  Serious: Yes (Other)
  Sender: FDA-Public Use
  Company Number: HR-ABBVIE-20K-216-3371962-00

PATIENT
  Age: 58 Year
  Sex: Male
  Weight: 95 kg

DRUGS (18)
  1. RITUXIMAB. [Concomitant]
     Active Substance: RITUXIMAB
     Dates: start: 201511
  2. RITUXIMAB. [Concomitant]
     Active Substance: RITUXIMAB
     Indication: PRODUCT USED FOR UNKNOWN INDICATION
     Dates: start: 2007
  3. VENCLYXTO [Suspect]
     Active Substance: VENETOCLAX
     Route: 048
     Dates: start: 20200117, end: 20200124
  4. VENCLYXTO [Suspect]
     Active Substance: VENETOCLAX
     Route: 048
     Dates: start: 20200207, end: 20200306
  5. RITUXIMAB. [Concomitant]
     Active Substance: RITUXIMAB
     Dosage: 1ST CYCLE 800 MG I.V, AND FROM 2ND TILL 6TH. DOSE 1000 MG I.V. EVERY 4 WEEKS
     Dates: start: 20200110, end: 20200309
  6. ACYCLOVIR. [Concomitant]
     Active Substance: ACYCLOVIR
     Indication: ANTIVIRAL PROPHYLAXIS
     Dosage: 400 (UNIT NOT PROVIDED)
     Route: 048
  7. IMMUNOGLOBULIN [Concomitant]
     Indication: IMMUNODEFICIENCY
     Dosage: EVERY 6-8 WEEKS
     Route: 042
  8. ALLOPURINOL. [Concomitant]
     Active Substance: ALLOPURINOL
     Indication: PROPHYLAXIS
     Dosage: 300 (UNIT NOT PROVIDED)
     Route: 048
     Dates: start: 20200108
  9. METILPREDNIZOLON [Concomitant]
     Active Substance: METHYLPREDNISOLONE
     Indication: CHRONIC LYMPHOCYTIC LEUKAEMIA
     Route: 048
  10. VENCLYXTO [Suspect]
     Active Substance: VENETOCLAX
     Indication: CHRONIC LYMPHOCYTIC LEUKAEMIA
     Route: 048
     Dates: start: 20200110, end: 20200117
  11. METILPREDNIZOLON [Concomitant]
     Active Substance: METHYLPREDNISOLONE
     Indication: LYMPHADENOPATHY
  12. VENCLYXTO [Suspect]
     Active Substance: VENETOCLAX
     Route: 048
     Dates: start: 20200124, end: 20200131
  13. RITUXIMAB. [Concomitant]
     Active Substance: RITUXIMAB
     Dosage: 4TH CYCLE
     Dates: start: 20200410
  14. TRIMETHOPRIM SULFAMETHOXAZOLE [Concomitant]
     Active Substance: SULFAMETHOXAZOLE\TRIMETHOPRIM
     Indication: ANTIFUNGAL PROPHYLAXIS
     Dosage: 800/160 (UNIT NOT PROVIDED)?3X1 A WEEK
     Route: 048
  15. HYDROXOCOBALAMIN [Concomitant]
     Active Substance: HYDROXOCOBALAMIN
     Indication: HYPOVITAMINOSIS
     Route: 058
  16. VENCLYXTO [Suspect]
     Active Substance: VENETOCLAX
     Route: 048
     Dates: start: 20200330
  17. ACYCLOVIR. [Concomitant]
     Active Substance: ACYCLOVIR
     Indication: PROPHYLAXIS
  18. FOLIC ACID. [Concomitant]
     Active Substance: FOLIC ACID
     Indication: HYPOVITAMINOSIS
     Route: 048

REACTIONS (8)
  - Blood alkaline phosphatase increased [Recovering/Resolving]
  - Leukopenia [Recovered/Resolved]
  - Alanine aminotransferase increased [Recovered/Resolved]
  - Neutropenia [Unknown]
  - Hyperuricaemia [Recovered/Resolved]
  - Gamma-glutamyltransferase increased [Recovering/Resolving]
  - Candida infection [Unknown]
  - Hepatic lesion [Unknown]

NARRATIVE: CASE EVENT DATE: 2020
